FAERS Safety Report 23219082 (Version 2)
Quarter: 2023Q4

REPORT INFORMATION
  Report Type: Spontaneous
  Country: US (occurrence: US)
  Receive Date: 20231122
  Receipt Date: 20231130
  Transmission Date: 20240109
  Serious: No
  Sender: FDA-Public Use
  Company Number: US-NOVOPROD-1030302

PATIENT
  Sex: Male

DRUGS (2)
  1. FIASP [Suspect]
     Active Substance: INSULIN ASPART
     Indication: Type 2 diabetes mellitus
     Dosage: 35 UNITS IN THE MORNING
     Route: 058
     Dates: start: 20211119
  2. TRESIBA [Suspect]
     Active Substance: INSULIN DEGLUDEC
     Indication: Type 2 diabetes mellitus
     Dosage: 35 UNITS IN THE MORNING
     Route: 058

REACTIONS (12)
  - Hypoacusis [Not Recovered/Not Resolved]
  - Insomnia [Not Recovered/Not Resolved]
  - Feeling abnormal [Not Recovered/Not Resolved]
  - Anxiety [Not Recovered/Not Resolved]
  - Tinnitus [Not Recovered/Not Resolved]
  - Diplopia [Not Recovered/Not Resolved]
  - Dizziness [Not Recovered/Not Resolved]
  - Ear disorder [Not Recovered/Not Resolved]
  - Mood altered [Not Recovered/Not Resolved]
  - Palpitations [Unknown]
  - Blood glucose decreased [Not Recovered/Not Resolved]
  - Product dispensing error [Unknown]

NARRATIVE: CASE EVENT DATE: 20221101
